FAERS Safety Report 16793407 (Version 2)
Quarter: 2019Q3

REPORT INFORMATION
  Report Type: Spontaneous
  Country: US (occurrence: US)
  Receive Date: 20190911
  Receipt Date: 20190916
  Transmission Date: 20191005
  Serious: Yes (Other)
  Sender: FDA-Public Use
  Company Number: US-ASTELLAS-2019US035726

PATIENT
  Age: 90 Year
  Sex: Male

DRUGS (1)
  1. VESICARE [Suspect]
     Active Substance: SOLIFENACIN SUCCINATE
     Indication: PRODUCT USED FOR UNKNOWN INDICATION
     Route: 065

REACTIONS (5)
  - Bladder cancer [Recovered/Resolved]
  - Drug ineffective [Unknown]
  - Genital haemorrhage [Recovered/Resolved]
  - Intercepted product prescribing error [Unknown]
  - Incontinence [Unknown]
